FAERS Safety Report 11452121 (Version 1)
Quarter: 2015Q3

REPORT INFORMATION
  Report Type: Spontaneous
  Country: US (occurrence: None)
  Receive Date: 20150902
  Receipt Date: 20150902
  Transmission Date: 20151125
  Serious: Yes (Hospitalization)
  Sender: FDA-Public Use
  Company Number: None

PATIENT
  Age: 34 Year
  Sex: Female
  Weight: 60.5 kg

DRUGS (14)
  1. TENEX [Concomitant]
     Active Substance: GUANFACINE HYDROCHLORIDE
  2. LISINOPRIL. [Concomitant]
     Active Substance: LISINOPRIL
  3. NORVASC [Concomitant]
     Active Substance: AMLODIPINE BESYLATE
  4. VIT. D [Concomitant]
  5. DILAUDID [Concomitant]
     Active Substance: HYDROMORPHONE HYDROCHLORIDE
  6. REGLAN [Concomitant]
     Active Substance: METOCLOPRAMIDE HYDROCHLORIDE
  7. SENSIPAR [Concomitant]
     Active Substance: CINACALCET HYDROCHLORIDE
  8. ROCEPHIN [Concomitant]
     Active Substance: CEFTRIAXONE SODIUM
  9. LACTULOSE. [Concomitant]
     Active Substance: LACTULOSE
  10. RIBAVIRAN 600 MG [Suspect]
     Active Substance: RIBAVIRIN
     Indication: HEPATITIS C
     Route: 048
     Dates: start: 20150506
  11. FAMOTIDINE. [Concomitant]
     Active Substance: FAMOTIDINE
  12. PREVACID [Concomitant]
     Active Substance: LANSOPRAZOLE
  13. CARVEDILOL. [Concomitant]
     Active Substance: CARVEDILOL
  14. VIEKIRA PAK [Suspect]
     Active Substance: DASABUVIR\OMBITASVIR\PARITAPREVIR\RITONAVIR
     Indication: HEPATITIS C
     Route: 048
     Dates: start: 20150506

REACTIONS (8)
  - Gastric ulcer [None]
  - Gastrointestinal erosion [None]
  - Cardiomegaly [None]
  - Upper gastrointestinal haemorrhage [None]
  - Gastrointestinal inflammation [None]
  - Angiopathy [None]
  - Nodule [None]
  - Anaemia [None]

NARRATIVE: CASE EVENT DATE: 20150604
